FAERS Safety Report 24450118 (Version 2)
Quarter: 2025Q1

REPORT INFORMATION
  Report Type: Spontaneous
  Country: US (occurrence: US)
  Receive Date: 20241017
  Receipt Date: 20250203
  Transmission Date: 20250409
  Serious: No
  Sender: BRISTOL-MYERS SQUIBB COMPANY
  Company Number: US-BRISTOL-MYERS SQUIBB COMPANY-2024-163237

PATIENT
  Age: 63 Year
  Sex: Female

DRUGS (5)
  1. ORENCIA [Suspect]
     Active Substance: ABATACEPT
     Indication: Rheumatoid arthritis
     Route: 058
     Dates: start: 201510
  2. ORENCIA [Suspect]
     Active Substance: ABATACEPT
     Route: 058
     Dates: start: 201509
  3. METHOTREXATE [Suspect]
     Active Substance: METHOTREXATE
     Indication: Product used for unknown indication
  4. TERIPARATIDE [Concomitant]
     Active Substance: TERIPARATIDE
     Indication: Bone disorder
  5. TERIPARATIDE [Concomitant]
     Active Substance: TERIPARATIDE
     Indication: Multiple injuries

REACTIONS (1)
  - Therapeutic response decreased [Unknown]
